FAERS Safety Report 6628274-7 (Version None)
Quarter: 2010Q1

REPORT INFORMATION
  Report Type: 
  Country: None (occurrence: None)
  Receive Date: 20100311
  Receipt Date: 20100302
  Transmission Date: 20100710
  Serious: Yes (Other)
  Sender: FDA-Public Use
  Company Number: JP-JNJFOC-20100301454

PATIENT

DRUGS (4)
  1. RISPERDAL [Suspect]
     Indication: SCHIZOPHRENIA
     Dosage: 2MG EACH 3 TIMES A DAY
     Route: 048
  2. RISPERDAL [Suspect]
     Dosage: 2MG EACH 3 TIMES A DAY
     Route: 048
  3. SERENACE [Suspect]
     Indication: SCHIZOPHRENIA
     Route: 065
  4. ARTANE [Suspect]
     Indication: DRUG USE FOR UNKNOWN INDICATION
     Route: 048

REACTIONS (4)
  - DEPRESSION [None]
  - DRUG DOSE OMISSION [None]
  - FALL [None]
  - SUICIDE ATTEMPT [None]
